FAERS Safety Report 6854788-0 (Version None)
Quarter: 2010Q3

REPORT INFORMATION
  Report Type: 
  Country: None (occurrence: None)
  Receive Date: 20100717
  Receipt Date: 20080113
  Transmission Date: 20110219
  Serious: Yes (Hospitalization)
  Sender: FDA-Public Use
  Company Number: US-PFIZER INC-2008004318

PATIENT
  Sex: Female
  Weight: 72.6 kg

DRUGS (3)
  1. CHANTIX [Suspect]
     Indication: SMOKING CESSATION THERAPY
     Route: 048
     Dates: start: 20071201
  2. ALL OTHER THERAPEUTIC PRODUCTS [Concomitant]
     Indication: BLOOD PRESSURE
  3. ESTROGENS [Concomitant]

REACTIONS (1)
  - DIZZINESS [None]
